FAERS Safety Report 13875974 (Version 1)
Quarter: 2017Q3

REPORT INFORMATION
  Report Type: Spontaneous
  Country: US (occurrence: US)
  Receive Date: 20170814
  Receipt Date: 20170814
  Transmission Date: 20171127
  Serious: Yes (Hospitalization, Disabling)
  Sender: FDA-Public Use
  Company Number: None

PATIENT
  Age: 34 Year
  Sex: Female
  Weight: 67.5 kg

DRUGS (2)
  1. KLONOPIN [Suspect]
     Active Substance: CLONAZEPAM
     Indication: INSOMNIA
     Dosage: ?          QUANTITY:1 TABLET(S);?
     Route: 048
  2. CELEXA [Concomitant]
     Active Substance: CITALOPRAM HYDROBROMIDE

REACTIONS (16)
  - Sleep paralysis [None]
  - Palpitations [None]
  - Educational problem [None]
  - Confusional state [None]
  - Suicidal ideation [None]
  - Sleep terror [None]
  - Cognitive disorder [None]
  - Fatigue [None]
  - Tremor [None]
  - Amnesia [None]
  - Panic attack [None]
  - Hyperhidrosis [None]
  - Insomnia [None]
  - Gastrointestinal disorder [None]
  - Withdrawal syndrome [None]
  - Paraesthesia [None]

NARRATIVE: CASE EVENT DATE: 20170425
